FAERS Safety Report 10041760 (Version 1)
Quarter: 2014Q1

REPORT INFORMATION
  Report Type: Spontaneous
  Country: GB (occurrence: None)
  Receive Date: 20140325
  Receipt Date: 20140325
  Transmission Date: 20141002
  Serious: Yes (Hospitalization)
  Sender: FDA-Public Use
  Company Number: 2014-000759

PATIENT
  Sex: 0

DRUGS (19)
  1. MIRTAZAPINE (MIRTAZAPINE) [Concomitant]
  2. OXYCODONE (OXYCODONE) [Concomitant]
  3. CICLOSPORIN (CICLOSPORIN) [Concomitant]
  4. CO-CODAMOL (CODEINE PHOSPHATE, PARACETAMOL) [Concomitant]
  5. FELODIPINE (FELODIPINE) [Concomitant]
  6. FUROSEMIDE (FUROSEMIDE) [Concomitant]
  7. LORAZEPAM (LORAZEPAM) [Concomitant]
  8. ADCAL D3 (CALCIUM CARBONATE, COLECALCIFEROL) [Concomitant]
  9. PREDNISOLONE (PREDNISOLONE) [Concomitant]
  10. PREDNISOLONE (PREDNISOLONE) [Concomitant]
  11. SALBUTAMOL (SALBUTAMOL) [Concomitant]
  12. CYCLIZINE (CYCLIZINE) [Concomitant]
  13. TIOTROPIUM (TIOTROPIUM) [Concomitant]
  14. PROCHLORPERAZINE (PROCHLORPERAZINE) [Concomitant]
  15. DORYX [Suspect]
     Indication: PRODUCT USED FOR UNKNOWN INDICATION
     Route: 048
     Dates: start: 20131128, end: 20131203
  16. CLARITHROMYCIN (CLARITHROMYCIN) [Suspect]
     Indication: PRODUCT USED FOR UNKNOWN INDICATION
     Dosage: PREVIOUSLY HAD A COURSE IN SEPTEMBER 2013 WITHOUT SEQUELAE
     Route: 048
  17. VENLAFAXINE (VENLAFAXINE HYDROCHLORIDE) (UNKNOWN) (VENLAFAXINE HYDROCHLORIDE) [Suspect]
     Indication: DEPRESSION
     Route: 048
     Dates: start: 20131017, end: 20140105
  18. ALENDRONIC ACID (ALENDRONIC ACID) [Concomitant]
  19. LANSOPRAZOLE (LANSOPRAZOLE) [Concomitant]

REACTIONS (1)
  - Liver function test abnormal [None]
